FAERS Safety Report 9538280 (Version 1)
Quarter: 2013Q3

REPORT INFORMATION
  Report Type: Other
  Country: LS (occurrence: LS)
  Receive Date: 20130920
  Receipt Date: 20130920
  Transmission Date: 20140515
  Serious: Yes (Other)
  Sender: FDA-Public Use
  Company Number: LS-BRISTOL-MYERS SQUIBB COMPANY-19219195

PATIENT
  Age: 59 Year
  Sex: Male

DRUGS (6)
  1. EFAVIRENZ CAPS [Suspect]
     Indication: HIV INFECTION
     Route: 048
  2. STAVUDINE [Suspect]
     Indication: HIV INFECTION
  3. STREPTOMYCIN [Suspect]
  4. LAMIVUDINE [Suspect]
     Indication: HIV INFECTION
  5. ZIDOVUDINE [Suspect]
     Indication: HIV INFECTION
  6. NEVIRAPINE [Suspect]

REACTIONS (1)
  - Drug resistance [Unknown]
